FAERS Safety Report 5598079-7 (Version None)
Quarter: 2008Q1

REPORT INFORMATION
  Report Type: 
  Country: None (occurrence: None)
  Receive Date: 20080122
  Receipt Date: 20080110
  Transmission Date: 20080703
  Serious: Yes (Death, Hospitalization, Other)
  Sender: FDA-Public Use
  Company Number: US-ELI_LILLY_AND_COMPANY-US200711004418

PATIENT
  Sex: Female

DRUGS (3)
  1. FORTEO [Suspect]
     Indication: OSTEOPOROSIS
     Dates: start: 20070101
  2. PANCREASE [Concomitant]
  3. NEXIUM [Concomitant]

REACTIONS (4)
  - ALCOHOLISM [None]
  - CHRONIC HEPATIC FAILURE [None]
  - MYOCARDIAL INFARCTION [None]
  - PANCREATITIS [None]
